FAERS Safety Report 7306644-1 (Version None)
Quarter: 2011Q1

REPORT INFORMATION
  Report Type: 
  Country: None (occurrence: None)
  Receive Date: 20110222
  Receipt Date: 20110214
  Transmission Date: 20110831
  Serious: Yes (Life-Threatening)
  Sender: FDA-Public Use
  Company Number: DE-CELGENEUS-062-50794-11021770

PATIENT
  Age: 44 Year
  Sex: Male
  Weight: 82 kg

DRUGS (3)
  1. ETOPOSIDE [Suspect]
     Route: 065
     Dates: start: 20110201, end: 20110203
  2. VIDAZA [Suspect]
     Route: 050
     Dates: start: 20110201, end: 20110205
  3. IDARUBICIN [Suspect]
     Route: 065
     Dates: start: 20110201, end: 20110205

REACTIONS (1)
  - SEPSIS [None]
